FAERS Safety Report 6044802-7 (Version None)
Quarter: 2009Q1

REPORT INFORMATION
  Report Type: 
  Country: None (occurrence: None)
  Receive Date: 20090120
  Receipt Date: 20090107
  Transmission Date: 20090719
  Serious: Yes (Hospitalization, Other)
  Sender: FDA-Public Use
  Company Number: AT-ELI_LILLY_AND_COMPANY-AT200811004524

PATIENT
  Sex: Male

DRUGS (1)
  1. GEMZAR [Suspect]
     Indication: NON-SMALL CELL LUNG CANCER
     Dosage: 1000 MG, UNK
     Route: 065
     Dates: start: 20081105, end: 20081101

REACTIONS (7)
  - ANAEMIA [None]
  - AORTIC ARTERIOSCLEROSIS [None]
  - BRONCHOPNEUMONIA [None]
  - CHOLELITHIASIS [None]
  - LEUKOPENIA [None]
  - MYOCARDIAL INFARCTION [None]
  - ULTRASOUND LIVER ABNORMAL [None]
